FAERS Safety Report 8010686-0 (Version None)
Quarter: 2011Q4

REPORT INFORMATION
  Report Type: 
  Country: None (occurrence: None)
  Receive Date: 20111228
  Receipt Date: 20111226
  Transmission Date: 20120403
  Serious: Yes (Death)
  Sender: FDA-Public Use
  Company Number: JP-COVIDIEN/TYCO HEALTHCARE/MALLINCKRODT-T201102909

PATIENT
  Age: 75 Year
  Sex: Male

DRUGS (7)
  1. MAGNESIUM OXIDE [Concomitant]
     Indication: CONSTIPATION
     Dosage: 250 MG, TWO
     Route: 048
  2. OPTIRAY 160 [Suspect]
     Indication: ANGIOGRAM
     Dosage: 90 ML, SINGLE
     Route: 013
     Dates: start: 20111102, end: 20111102
  3. CALCIUM CARBONATE [Concomitant]
     Indication: RENAL FAILURE CHRONIC
     Dosage: 1 G, THREE
     Route: 048
  4. CANDESARTAN CILEXETIL [Concomitant]
     Indication: HYPERTENSION
     Dosage: 8 MG, ONE
     Route: 048
  5. ALFACALCIDOL [Concomitant]
     Indication: RENAL FAILURE CHRONIC
     Dosage: .25 UG, ONE
     Route: 048
  6. LANSOPRAZOLE [Concomitant]
     Indication: GASTRITIS
     Dosage: 30 MG, ONE
     Route: 048
  7. NIFEDIPINE [Concomitant]
     Indication: HYPERTENSION
     Dosage: 40 MG, ONE
     Route: 048

REACTIONS (1)
  - SHOCK [None]
